FAERS Safety Report 19143567 (Version 1)
Quarter: 2021Q2

REPORT INFORMATION
  Report Type: Spontaneous
  Country: PE (occurrence: PE)
  Receive Date: 20210416
  Receipt Date: 20210416
  Transmission Date: 20210717
  Serious: Yes (Hospitalization, Other)
  Sender: FDA-Public Use
  Company Number: PE-TEVA-2021-PE-1902240

PATIENT
  Age: 40 Year
  Sex: Female

DRUGS (8)
  1. AMIKACIN. [Suspect]
     Active Substance: AMIKACIN
     Indication: MYCOBACTERIAL INFECTION
     Route: 042
  2. VENLAFAXINE [Concomitant]
     Active Substance: VENLAFAXINE HYDROCHLORIDE
     Indication: DEPRESSION
     Route: 065
  3. IMIPENEM?CILASTATIN [Suspect]
     Active Substance: CILASTATIN SODIUM\IMIPENEM
     Indication: MYCOBACTERIAL INFECTION
     Dosage: 2000 MILLIGRAM DAILY;
     Route: 041
  4. CIPROFLOXACIN. [Suspect]
     Active Substance: CIPROFLOXACIN
     Indication: MYCOBACTERIAL INFECTION
     Dosage: 1500 MILLIGRAM DAILY;
     Route: 048
  5. AMIKACIN. [Suspect]
     Active Substance: AMIKACIN
     Dosage: THREE TIMES A WEEK
     Route: 042
  6. CEFOXITIN [Suspect]
     Active Substance: CEFOXITIN SODIUM
     Indication: MYCOBACTERIAL INFECTION
     Dosage: 6 GRAM DAILY;
     Route: 065
  7. DOXYCYCLINE. [Suspect]
     Active Substance: DOXYCYCLINE
     Indication: MYCOBACTERIAL INFECTION
     Dosage: 200 MILLIGRAM DAILY;
     Route: 065
  8. CIPROFLOXACIN. [Suspect]
     Active Substance: CIPROFLOXACIN
     Route: 048

REACTIONS (3)
  - Drug reaction with eosinophilia and systemic symptoms [Recovered/Resolved]
  - Nausea [Unknown]
  - Tendon disorder [Unknown]
